FAERS Safety Report 5728420-3 (Version None)
Quarter: 2008Q2

REPORT INFORMATION
  Report Type: 
  Country: None (occurrence: None)
  Receive Date: 20080506
  Receipt Date: 20080428
  Transmission Date: 20081010
  Serious: Yes (Other)
  Sender: FDA-Public Use
  Company Number: ES-AVENTIS-200811962EU

PATIENT
  Age: 57 Year
  Sex: Female

DRUGS (1)
  1. ENOXAPARIN SODIUM [Suspect]
     Dosage: DOSE: UNK
     Dates: start: 20080101, end: 20080101

REACTIONS (4)
  - FEELING HOT [None]
  - HOT FLUSH [None]
  - OEDEMA PERIPHERAL [None]
  - PARAESTHESIA [None]
